FAERS Safety Report 5834814-8 (Version None)
Quarter: 2008Q3

REPORT INFORMATION
  Report Type: 
  Country: None (occurrence: None)
  Receive Date: 20080805
  Receipt Date: 20080728
  Transmission Date: 20090109
  Serious: Yes (Hospitalization)
  Sender: FDA-Public Use
  Company Number: US-ELI_LILLY_AND_COMPANY-US200807006405

PATIENT
  Age: 40 Year
  Sex: Female

DRUGS (1)
  1. BYETTA [Suspect]

REACTIONS (4)
  - ABSCESS [None]
  - BLOOD GLUCOSE ABNORMAL [None]
  - DECREASED APPETITE [None]
  - WEIGHT DECREASED [None]
